FAERS Safety Report 5135252-6 (Version None)
Quarter: 2006Q4

REPORT INFORMATION
  Report Type: 
  Country: None (occurrence: None)
  Receive Date: 20061026
  Receipt Date: 20060914
  Transmission Date: 20070319
  Serious: Yes (Other)
  Sender: FDA-Public Use
  Company Number: FRWYE932815SEP06

PATIENT
  Sex: Male
  Weight: 66 kg

DRUGS (2)
  1. ENBREL [Suspect]
     Indication: PSORIATIC ARTHROPATHY
     Route: 058
     Dates: start: 20050101, end: 20060910
  2. PERINDOPRIL ERBUMINE [Concomitant]
     Indication: HYPERTENSION
     Dosage: UNKNOWN
     Route: 048
     Dates: start: 20060101, end: 20060101

REACTIONS (6)
  - CONDITION AGGRAVATED [None]
  - ERYTHEMA [None]
  - HOT FLUSH [None]
  - HYPERTENSION [None]
  - MALAISE [None]
  - URTICARIA [None]
